FAERS Safety Report 14071144 (Version 2)
Quarter: 2017Q4

REPORT INFORMATION
  Report Type: Spontaneous
  Country: US (occurrence: US)
  Receive Date: 20171010
  Receipt Date: 20171107
  Transmission Date: 20180321
  Serious: Yes (Other)
  Sender: FDA-Public Use
  Company Number: US-TEVA-811906USA

PATIENT
  Sex: Female
  Weight: 102.15 kg

DRUGS (4)
  1. GABAPENTIN. [Concomitant]
     Active Substance: GABAPENTIN
  2. VESICARE [Concomitant]
     Active Substance: SOLIFENACIN SUCCINATE
  3. PROAIR HFA [Suspect]
     Active Substance: ALBUTEROL SULFATE
     Indication: COUGH
     Dosage: 2 PUFFS 4 TIMES PER DAY AS NEEDED
     Route: 065
     Dates: start: 20170925, end: 20170925
  4. SULINDAC. [Concomitant]
     Active Substance: SULINDAC

REACTIONS (4)
  - Mouth swelling [Recovered/Resolved]
  - Hypersensitivity [Recovered/Resolved]
  - Tongue oedema [Recovered/Resolved]
  - Pharyngeal oedema [Recovered/Resolved]

NARRATIVE: CASE EVENT DATE: 20170925
